FAERS Safety Report 8911391 (Version 2)
Quarter: 2012Q4

REPORT INFORMATION
  Report Type: 
  Country: IT (occurrence: IT)
  Receive Date: 20121116
  Receipt Date: 20121129
  Transmission Date: 20130627
  Serious: Yes (Hospitalization)
  Sender: FDA-Public Use
  Company Number: IT-BRISTOL-MYERS SQUIBB COMPANY-17119017

PATIENT
  Age: 72 Year
  Sex: Female

DRUGS (1)
  1. COUMADIN TABS 5 MG [Suspect]
     Indication: ATRIAL FIBRILLATION
     Dosage: Last dose was on:26-Oct-2012
     Route: 048
     Dates: start: 20111101

REACTIONS (3)
  - Transient ischaemic attack [Unknown]
  - International normalised ratio increased [Unknown]
  - Anxiety [Unknown]
